FAERS Safety Report 10076360 (Version 1)
Quarter: 2014Q2

REPORT INFORMATION
  Report Type: Spontaneous
  Country: NL (occurrence: NL)
  Receive Date: 20140414
  Receipt Date: 20140414
  Transmission Date: 20141212
  Serious: Yes (Hospitalization)
  Sender: FDA-Public Use
  Company Number: NL-IPSEN BIOPHARMACEUTICALS, INC.-2014-1698

PATIENT
  Age: 55 Year
  Sex: Female

DRUGS (2)
  1. SOMATULINE AUTOSOLUTION 120MG [Suspect]
     Indication: HEPATIC CYST
     Dosage: 120 MG
     Route: 058
     Dates: start: 20131017
  2. SOMATULINE AUTOSOLUTION 120MG [Suspect]
     Indication: OFF LABEL USE

REACTIONS (1)
  - Hospitalisation [Unknown]
